FAERS Safety Report 7378497-7 (Version None)
Quarter: 2011Q1

REPORT INFORMATION
  Report Type: 
  Country: None (occurrence: None)
  Receive Date: 20110323
  Receipt Date: 20110323
  Transmission Date: 20110831
  Serious: No
  Sender: FDA-Public Use
  Company Number: None

PATIENT
  Age: 21 Year
  Sex: Male
  Weight: 68.0396 kg

DRUGS (1)
  1. DIVALPROEX SODIUM [Suspect]
     Dosage: 500MG BID PO
     Route: 048

REACTIONS (1)
  - NEUTROPHIL COUNT DECREASED [None]
